FAERS Safety Report 22279996 (Version 1)
Quarter: 2023Q2

REPORT INFORMATION
  Report Type: Report from Study
  Country: PA (occurrence: PA)
  Receive Date: 20230503
  Receipt Date: 20230503
  Transmission Date: 20230722
  Serious: Yes (Other)
  Sender: FDA-Public Use
  Company Number: PA-BIOGEN-2023BI01202131

PATIENT
  Sex: Female
  Weight: 59 kg

DRUGS (15)
  1. AVONEX [Suspect]
     Active Substance: INTERFERON BETA-1A
     Indication: Relapsing multiple sclerosis
     Route: 050
     Dates: start: 20030101
  2. AVONEX [Suspect]
     Active Substance: INTERFERON BETA-1A
  3. AVONEX [Suspect]
     Active Substance: INTERFERON BETA-1A
  4. AVONEX [Suspect]
     Active Substance: INTERFERON BETA-1A
  5. CANDESARTAN CILEXETIL\HYDROCHLOROTHIAZIDE [Concomitant]
     Active Substance: CANDESARTAN CILEXETIL\HYDROCHLOROTHIAZIDE
     Indication: Blood pressure abnormal
     Dosage: 32/12/5 MG IN THE MORNING
     Route: 050
     Dates: start: 2010
  6. LIPITOR [Concomitant]
     Active Substance: ATORVASTATIN CALCIUM
     Indication: Blood cholesterol abnormal
     Dosage: 20MG DAILY
     Route: 050
     Dates: start: 2010
  7. NEXIUM [Concomitant]
     Active Substance: ESOMEPRAZOLE MAGNESIUM
     Indication: Gastritis
     Route: 050
     Dates: start: 2010
  8. VITAMINS [Concomitant]
     Active Substance: VITAMINS
     Indication: Vitamin supplementation
     Route: 050
     Dates: start: 202211
  9. GLUCOSAMINE [Concomitant]
     Active Substance: GLUCOSAMINE
     Indication: Rheumatoid arthritis
     Route: 050
     Dates: start: 2003
  10. CALCIVON VIT D [Concomitant]
     Indication: Vitamin supplementation
     Route: 050
     Dates: start: 202112
  11. VITAMIN B12 [Concomitant]
     Active Substance: CYANOCOBALAMIN
     Indication: Product used for unknown indication
     Route: 050
     Dates: start: 2003
  12. DOLO-NEUROBION [Concomitant]
     Indication: Pain
     Route: 050
     Dates: start: 2022
  13. HYALURONATE SODIUM [Concomitant]
     Active Substance: HYALURONATE SODIUM
     Indication: Eye disorder prophylaxis
     Dosage: TID
     Route: 050
     Dates: start: 2021
  14. FOLIC ACID [Concomitant]
     Active Substance: FOLIC ACID
     Indication: Product used for unknown indication
     Dosage: 5MG DAILY
     Route: 050
     Dates: start: 2020
  15. COLCHICINE [Concomitant]
     Active Substance: COLCHICINE
     Indication: Rheumatoid arthritis
     Route: 050

REACTIONS (11)
  - Ocular discomfort [Not Recovered/Not Resolved]
  - Lens dislocation [Unknown]
  - Eye disorder [Unknown]
  - Ophthalmic vascular thrombosis [Unknown]
  - Eye irritation [Unknown]
  - Lacrimation increased [Unknown]
  - Pyrexia [Recovered/Resolved]
  - Rheumatic disorder [Recovered/Resolved]
  - Ear discomfort [Recovered/Resolved]
  - Eye disorder [Unknown]
  - Insomnia [Recovered/Resolved]

NARRATIVE: CASE EVENT DATE: 20230101
